FAERS Safety Report 20534481 (Version 1)
Quarter: 2022Q1

REPORT INFORMATION
  Report Type: Spontaneous
  Country: US (occurrence: US)
  Receive Date: 20220302
  Receipt Date: 20220302
  Transmission Date: 20220424
  Serious: No
  Sender: FDA-Public Use
  Company Number: US-SA-SAC20220225000599

PATIENT
  Age: 26 Year
  Sex: Female

DRUGS (2)
  1. DUPIXENT [Suspect]
     Active Substance: DUPILUMAB
     Dosage: UNK
     Route: 058
     Dates: start: 20181001
  2. COVID-19 VACCINE [Concomitant]
     Indication: Immunisation
     Dosage: COVID VACCINES AND BOOSTER (UNKNOWN BRAND)
     Route: 058

REACTIONS (1)
  - COVID-19 [Not Recovered/Not Resolved]
